FAERS Safety Report 23392185 (Version 1)
Quarter: 2024Q1

REPORT INFORMATION
  Report Type: Spontaneous
  Country: US (occurrence: US)
  Receive Date: 20240111
  Receipt Date: 20240111
  Transmission Date: 20240410
  Serious: No
  Sender: FDA-Public Use
  Company Number: US-PFIZER INC-PV202400003295

PATIENT
  Age: 39 Year
  Sex: Female

DRUGS (1)
  1. IBRANCE [Suspect]
     Active Substance: PALBOCICLIB
     Dosage: EVERY OTHER DAY

REACTIONS (6)
  - Full blood count decreased [Unknown]
  - Chapped lips [Unknown]
  - Nasopharyngitis [Unknown]
  - Pyrexia [Unknown]
  - Intentional product misuse [Unknown]
  - Product dose omission in error [Unknown]
